FAERS Safety Report 11420711 (Version 1)
Quarter: 2015Q3

REPORT INFORMATION
  Report Type: Report from Study
  Country: NZ (occurrence: NZ)
  Receive Date: 20150826
  Receipt Date: 20150826
  Transmission Date: 20151125
  Serious: Yes (Other)
  Sender: FDA-Public Use
  Company Number: NZ-ASTRAZENECA-2015SE79823

PATIENT
  Sex: Male

DRUGS (1)
  1. BRILINTA [Suspect]
     Active Substance: TICAGRELOR
     Indication: ACUTE CORONARY SYNDROME
     Route: 048
     Dates: start: 20141022

REACTIONS (5)
  - Blood urine present [Recovering/Resolving]
  - Urinary tract infection [Recovering/Resolving]
  - Gout [Recovering/Resolving]
  - Bladder mass [Unknown]
  - Discomfort [Recovering/Resolving]
